FAERS Safety Report 18154182 (Version 1)
Quarter: 2020Q3

REPORT INFORMATION
  Report Type: Report from Study
  Country: None (occurrence: DE)
  Receive Date: 20200816
  Receipt Date: 20200816
  Transmission Date: 20201103
  Serious: Yes (Hospitalization)
  Sender: FDA-Public Use
  Company Number: DE-ABBVIE-20K-062-3522658-00

PATIENT
  Sex: Female

DRUGS (2)
  1. AMGEVITA [Suspect]
     Active Substance: ADALIMUMAB
     Indication: PRODUCT USED FOR UNKNOWN INDICATION
     Route: 050
     Dates: start: 201907
  2. HUMIRA [Suspect]
     Active Substance: ADALIMUMAB
     Indication: ANKYLOSING SPONDYLITIS
     Route: 058
     Dates: start: 20131020, end: 2019

REACTIONS (7)
  - Myocardial infarction [Recovered/Resolved]
  - Enchondromatosis [Recovered/Resolved]
  - Restlessness [Recovered/Resolved]
  - Heart rate abnormal [Recovered/Resolved]
  - Tachycardia [Recovered/Resolved]
  - Food intolerance [Unknown]
  - Skin reaction [Not Recovered/Not Resolved]

NARRATIVE: CASE EVENT DATE: 2015
